FAERS Safety Report 8048792-7 (Version None)
Quarter: 2012Q1

REPORT INFORMATION
  Report Type: 
  Country: None (occurrence: None)
  Receive Date: 20120117
  Receipt Date: 20120113
  Transmission Date: 20120608
  Serious: Yes (Hospitalization, Other)
  Sender: FDA-Public Use
  Company Number: US-BAYER-2012-004578

PATIENT
  Sex: Female

DRUGS (2)
  1. YASMIN [Suspect]
     Dosage: UNK
     Route: 048
     Dates: start: 20040601
  2. DROSPIRENONE AND ETHINYL ESTRADIOL [Suspect]

REACTIONS (2)
  - PULMONARY EMBOLISM [None]
  - PAIN IN EXTREMITY [None]
